FAERS Safety Report 7743372-2 (Version None)
Quarter: 2011Q3

REPORT INFORMATION
  Report Type: 
  Country: None (occurrence: None)
  Receive Date: 20110819
  Receipt Date: 20110511
  Transmission Date: 20111222
  Serious: No
  Sender: FDA-Public Use
  Company Number: 033959

PATIENT
  Sex: Female
  Weight: 42.2 kg

DRUGS (6)
  1. TYLENOL (CAPLET) [Concomitant]
  2. LORAZEPAM [Concomitant]
  3. OTHER NUTRIENTS (OTHER NUTRIENTS) [Concomitant]
  4. PHENYTOIN (PHYENYTOIN) [Concomitant]
  5. LACOSAMIDE [Suspect]
     Dosage: 50 IN AM, 150 IN AFTERNOON
  6. SYNTHROID [Suspect]
     Indication: THYROID ADENOMA REMOVAL
     Dosage: SUNDAY ANOTHER 1/2 OF 125 MCG
     Dates: start: 20080101

REACTIONS (3)
  - HEART RATE INCREASED [None]
  - BLOOD THYROID STIMULATING HORMONE [None]
  - HYPERHIDROSIS [None]
